FAERS Safety Report 24029980 (Version 1)
Quarter: 2024Q2

REPORT INFORMATION
  Report Type: Spontaneous
  Country: US (occurrence: None)
  Receive Date: 20240628
  Receipt Date: 20240628
  Transmission Date: 20240716
  Serious: Yes (Other)
  Sender: FDA-Public Use
  Company Number: None

PATIENT
  Age: 63 Year
  Sex: Male
  Weight: 67.5 kg

DRUGS (1)
  1. QUVIVIQ [Suspect]
     Active Substance: DARIDOREXANT
     Indication: Insomnia
     Dosage: 30 TABLETS AT BEDTIME ORAL
     Route: 048
     Dates: start: 20240626, end: 20240626

REACTIONS (5)
  - Malaise [None]
  - Anxiety [None]
  - Dizziness [None]
  - Insomnia [None]
  - Product complaint [None]

NARRATIVE: CASE EVENT DATE: 20240627
